FAERS Safety Report 16573127 (Version 1)
Quarter: 2019Q3

REPORT INFORMATION
  Report Type: Report from Study
  Country: US (occurrence: US)
  Receive Date: 20190715
  Receipt Date: 20190715
  Transmission Date: 20191004
  Serious: Yes (Other)
  Sender: FDA-Public Use
  Company Number: US-BAYER-2019-130860

PATIENT

DRUGS (3)
  1. HEPARIN [Interacting]
     Active Substance: HEPARIN SODIUM
     Dosage: 7 UNK
  2. WARFARIN [Suspect]
     Active Substance: WARFARIN
  3. ASPIRIN. [Suspect]
     Active Substance: ASPIRIN
     Indication: ANTICOAGULANT THERAPY
     Dosage: 81 MG

REACTIONS (2)
  - Subarachnoid haemorrhage [None]
  - Labelled drug-drug interaction medication error [None]
